FAERS Safety Report 4694978-9 (Version None)
Quarter: 2005Q2

REPORT INFORMATION
  Report Type: 
  Country: None (occurrence: None)
  Receive Date: 20050620
  Receipt Date: 20050610
  Transmission Date: 20051028
  Serious: Yes (Life-Threatening)
  Sender: FDA-Public Use
  Company Number: IT-ABBOTT-05P-083-0302896-00

PATIENT
  Age: 61 Year
  Sex: Male

DRUGS (1)
  1. KLACID [Suspect]
     Indication: TRACHEITIS
     Route: 048
     Dates: start: 20050525, end: 20050528

REACTIONS (1)
  - ANAEMIA HAEMOLYTIC AUTOIMMUNE [None]
